FAERS Safety Report 4304032-3 (Version None)
Quarter: 2004Q1

REPORT INFORMATION
  Report Type: 
  Country: None (occurrence: None)
  Receive Date: 20040223
  Receipt Date: 20031124
  Transmission Date: 20041129
  Serious: No
  Sender: FDA-Public Use
  Company Number: PHEH2003US09934

PATIENT
  Sex: Female

DRUGS (4)
  1. ZELNORM [Suspect]
     Indication: ABDOMINAL PAIN
     Dosage: 6 MG, BID, ORAL
     Route: 048
     Dates: start: 20030916, end: 20031016
  2. ALLEGRA [Concomitant]
  3. ORTHO TRI-CYCLEN (NORGESTIMATE) [Concomitant]
  4. RHINOCORT [Concomitant]

REACTIONS (2)
  - FLUID RETENTION [None]
  - WEIGHT INCREASED [None]
